FAERS Safety Report 9330677 (Version 3)
Quarter: 2013Q3

REPORT INFORMATION
  Report Type: Report from Study
  Country: KR (occurrence: KR)
  Receive Date: 20130605
  Receipt Date: 20130723
  Transmission Date: 20140515
  Serious: Yes (Other)
  Sender: FDA-Public Use
  Company Number: KR-ROCHE-1231994

PATIENT
  Age: 30 Year
  Sex: Male

DRUGS (3)
  1. TOCILIZUMAB [Suspect]
     Indication: STILL^S DISEASE ADULT ONSET
     Route: 042
     Dates: start: 20111222, end: 20120125
  2. TOCILIZUMAB [Suspect]
     Indication: OFF LABEL USE
  3. CICLOSPORIN [Concomitant]
     Indication: STILL^S DISEASE ADULT ONSET
     Route: 065

REACTIONS (1)
  - Hepatotoxicity [Recovering/Resolving]
